FAERS Safety Report 17375211 (Version 1)
Quarter: 2020Q1

REPORT INFORMATION
  Report Type: Spontaneous
  Country: US (occurrence: US)
  Receive Date: 20200121
  Receipt Date: 20200121
  Transmission Date: 20200409
  Serious: Yes (Hospitalization)
  Sender: FDA-Public Use
  Company Number: None

PATIENT
  Age: 68 Year
  Sex: Male
  Weight: 73 kg

DRUGS (2)
  1. INSULIN (INSULIN GLARGINE,HUMAN 100 UNIT/ML INJ SOLOSTAR,3ML) [Suspect]
     Active Substance: INSULIN GLARGINE
     Indication: END STAGE RENAL DISEASE
  2. INSULIN (INSULIN GLARGINE,HUMAN 100 UNIT/ML INJ SOLOSTAR,3ML) [Suspect]
     Active Substance: INSULIN GLARGINE
     Indication: DIABETES MELLITUS
     Dosage: ?          OTHER DOSE:30 UNITS;?
     Route: 058
     Dates: start: 20190617, end: 20191010

REACTIONS (2)
  - Sedation [None]
  - Hypoglycaemia [None]

NARRATIVE: CASE EVENT DATE: 20191010
